FAERS Safety Report 5059461-X (Version None)
Quarter: 2006Q2

REPORT INFORMATION
  Report Type: 
  Country: None (occurrence: None)
  Receive Date: 20060629
  Receipt Date: 20060313
  Transmission Date: 20061013
  Serious: No
  Sender: FDA-Public Use
  Company Number: PHEH2006US03322

PATIENT
  Age: 84 Year
  Sex: Female

DRUGS (8)
  1. ENABLEX [Suspect]
     Indication: HYPERTONIC BLADDER
     Dosage: 7.5 MG, QD, ORAL
     Route: 048
     Dates: start: 20060301
  2. CRESTOR [Concomitant]
  3. ACTONEL [Concomitant]
  4. BENICAR [Concomitant]
  5. NAMENDA [Concomitant]
  6. ARICEPT [Concomitant]
  7. DYAZIDE [Concomitant]
  8. VERAPAMIL [Concomitant]

REACTIONS (1)
  - INSOMNIA [None]
